FAERS Safety Report 16199857 (Version 1)
Quarter: 2019Q2

REPORT INFORMATION
  Report Type: Spontaneous
  Country: FR (occurrence: FR)
  Receive Date: 20190415
  Receipt Date: 20190415
  Transmission Date: 20190711
  Serious: Yes (Hospitalization, Other)
  Sender: FDA-Public Use
  Company Number: PHHY2019FR079550

PATIENT
  Age: 54 Year
  Sex: Male
  Weight: 66 kg

DRUGS (1)
  1. TACROLIMUS. [Suspect]
     Active Substance: TACROLIMUS
     Indication: IMMUNOSUPPRESSION
     Dosage: 7 MG, QD
     Route: 048
     Dates: start: 20170912

REACTIONS (4)
  - Renal graft infection [Recovered/Resolved]
  - Pyelonephritis [Recovered/Resolved]
  - Graft infection [Recovered/Resolved]
  - Metaplasia [Recovered/Resolved]

NARRATIVE: CASE EVENT DATE: 20180911
